FAERS Safety Report 25671366 (Version 1)
Quarter: 2025Q3

REPORT INFORMATION
  Report Type: Spontaneous
  Country: US (occurrence: US)
  Receive Date: 20250812
  Receipt Date: 20250812
  Transmission Date: 20251021
  Serious: Yes (Life-Threatening, Other)
  Sender: BAUSCH AND LOMB
  Company Number: US-MLMSERVICE-20250728-PI595257-00059-1

PATIENT
  Age: 49 Year
  Sex: Female

DRUGS (2)
  1. AZATHIOPRINE [Suspect]
     Active Substance: AZATHIOPRINE
     Indication: Colitis ulcerative
     Route: 065
  2. INFLIXIMAB [Suspect]
     Active Substance: INFLIXIMAB
     Indication: Colitis ulcerative
     Route: 065

REACTIONS (10)
  - Haemophagocytic lymphohistiocytosis [Recovering/Resolving]
  - Cardiogenic shock [Recovering/Resolving]
  - Unresponsive to stimuli [Recovering/Resolving]
  - Disseminated intravascular coagulation [Recovering/Resolving]
  - Hypoglycaemia [Recovering/Resolving]
  - Supraventricular tachycardia [Recovering/Resolving]
  - Lactic acidosis [Recovering/Resolving]
  - Stress cardiomyopathy [Recovering/Resolving]
  - Septic shock [Recovering/Resolving]
  - Therapy non-responder [Unknown]
